FAERS Safety Report 9112693 (Version 1)
Quarter: 2013Q1

REPORT INFORMATION
  Report Type: Spontaneous
  Country: US (occurrence: US)
  Receive Date: 20130211
  Receipt Date: 20130211
  Transmission Date: 20140127
  Serious: Yes (Other)
  Sender: FDA-Public Use
  Company Number: -DX529-2013DX000025

PATIENT
  Age: 18 Year
  Sex: Female
  Weight: 89.81 kg

DRUGS (2)
  1. KALBITOR [Suspect]
     Indication: HEREDITARY ANGIOEDEMA
     Route: 058
     Dates: start: 20130130, end: 20130130
  2. KALBITOR [Suspect]
     Indication: HEREDITARY ANGIOEDEMA
     Dates: start: 2012, end: 2013

REACTIONS (3)
  - Anaphylactic reaction [Recovered/Resolved]
  - Injection site reaction [Recovered/Resolved]
  - Fall [None]
